FAERS Safety Report 21379723 (Version 2)
Quarter: 2023Q1

REPORT INFORMATION
  Report Type: Spontaneous
  Country: FR (occurrence: FR)
  Receive Date: 20220927
  Receipt Date: 20230104
  Transmission Date: 20230417
  Serious: Yes (Other)
  Sender: FDA-Public Use
  Company Number: FR-ROCHE-3174266

PATIENT
  Age: 69 Year
  Sex: Female
  Weight: 54 kg

DRUGS (9)
  1. CARBOPLATIN [Suspect]
     Active Substance: CARBOPLATIN
     Indication: Malignant peritoneal neoplasm
     Dosage: 290 MILLIGRAM
     Route: 042
     Dates: start: 20211125, end: 20220413
  2. CARBOPLATIN [Suspect]
     Active Substance: CARBOPLATIN
     Indication: Ovarian cancer recurrent
  3. GEMCITABINE [Suspect]
     Active Substance: GEMCITABINE
     Indication: Malignant peritoneal neoplasm
     Dosage: 1550 MILLIGRAM
     Route: 042
     Dates: start: 20211125, end: 20220413
  4. GEMCITABINE [Suspect]
     Active Substance: GEMCITABINE
     Indication: Ovarian cancer recurrent
  5. NERATINIB [Suspect]
     Active Substance: NERATINIB
     Indication: Malignant peritoneal neoplasm
     Dosage: 100 MILLIGRAM
     Route: 048
     Dates: start: 20210428, end: 20220811
  6. NERATINIB [Suspect]
     Active Substance: NERATINIB
     Indication: Ovarian cancer recurrent
  7. ATEZOLIZUMAB [Suspect]
     Active Substance: ATEZOLIZUMAB
     Indication: Malignant peritoneal neoplasm
     Dosage: UNK
     Route: 042
     Dates: start: 20211125, end: 20220721
  8. ATEZOLIZUMAB [Suspect]
     Active Substance: ATEZOLIZUMAB
     Indication: Ovarian cancer recurrent
  9. ESOMEPRAZOLE [Concomitant]
     Active Substance: ESOMEPRAZOLE
     Indication: Product used for unknown indication
     Dosage: 20 MILLIGRAM
     Route: 065
     Dates: start: 20220407

REACTIONS (1)
  - Hypothyroidism [Recovered/Resolved]

NARRATIVE: CASE EVENT DATE: 20220810
